FAERS Safety Report 14609819 (Version 1)
Quarter: 2018Q1

REPORT INFORMATION
  Report Type: Spontaneous
  Country: US (occurrence: US)
  Receive Date: 20180307
  Receipt Date: 20180307
  Transmission Date: 20180509
  Serious: Yes (Hospitalization)
  Sender: FDA-Public Use
  Company Number: US-JAZZ-2018-US-003366

PATIENT
  Age: 31 Year
  Sex: Male

DRUGS (1)
  1. CLOZAPINE. [Suspect]
     Active Substance: CLOZAPINE
     Indication: SCHIZOPHRENIA
     Dosage: 25 MG -100MG DOSE VARIANCE
     Route: 048

REACTIONS (7)
  - Pyrexia [Recovering/Resolving]
  - Chills [Recovering/Resolving]
  - Sinus tachycardia [Recovering/Resolving]
  - C-reactive protein increased [Recovering/Resolving]
  - Hyperhidrosis [Recovering/Resolving]
  - Troponin increased [Recovering/Resolving]
  - White blood cell count increased [Recovering/Resolving]
